FAERS Safety Report 7555522-1 (Version None)
Quarter: 2011Q2

REPORT INFORMATION
  Report Type: 
  Country: None (occurrence: None)
  Receive Date: 20110617
  Receipt Date: 20050622
  Transmission Date: 20111010
  Serious: Yes (Death, Hospitalization, Other)
  Sender: FDA-Public Use
  Company Number: PHHO2005CO09612

PATIENT
  Sex: Female

DRUGS (3)
  1. APPETITE STIMULANTS [Concomitant]
  2. OXYCODONE HCL [Concomitant]
  3. FEMARA [Suspect]
     Indication: BREAST CANCER
     Dosage: 2.5 MG, QD
     Route: 048
     Dates: start: 20050605

REACTIONS (4)
  - DYSPNOEA [None]
  - NERVOUS SYSTEM DISORDER [None]
  - NEOPLASM MALIGNANT [None]
  - VISION BLURRED [None]
